FAERS Safety Report 4723421-6 (Version None)
Quarter: 2005Q3

REPORT INFORMATION
  Report Type: 
  Country: None (occurrence: None)
  Receive Date: 20050721
  Receipt Date: 20050721
  Transmission Date: 20060218
  Serious: Yes (Hospitalization)
  Sender: FDA-Public Use
  Company Number: None

PATIENT
  Age: 66 Year
  Sex: Female

DRUGS (1)
  1. GATIFLOXACIN [Suspect]
     Dosage: 200 MG DAILY ORAL
     Route: 048

REACTIONS (1)
  - CLOSTRIDIUM DIFFICILE TOXIN TEST POSITIVE [None]
